FAERS Safety Report 4775549-2 (Version None)
Quarter: 2005Q3

REPORT INFORMATION
  Report Type: 
  Country: None (occurrence: None)
  Receive Date: 20050920
  Receipt Date: 20050908
  Transmission Date: 20060218
  Serious: Yes (Other)
  Sender: FDA-Public Use
  Company Number: 2005125821

PATIENT
  Sex: Male
  Weight: 90.7194 kg

DRUGS (3)
  1. DILANTIN [Suspect]
     Indication: CONVULSION
     Dosage: ORAL
     Route: 048
     Dates: start: 20000101
  2. PHENOBARBITAL TAB [Suspect]
     Indication: CONVULSION
  3. CARBATROL [Suspect]
     Indication: CONVULSION

REACTIONS (3)
  - CONVULSION [None]
  - POST PROCEDURAL COMPLICATION [None]
  - TONGUE BITING [None]
